FAERS Safety Report 5475653-X (Version None)
Quarter: 2007Q4

REPORT INFORMATION
  Report Type: 
  Country: None (occurrence: None)
  Receive Date: 20071001
  Receipt Date: 20070917
  Transmission Date: 20080405
  Serious: Yes (Death)
  Sender: FDA-Public Use
  Company Number: CAR-2007-035

PATIENT
  Age: 83 Year
  Sex: Female

DRUGS (3)
  1. CARAFATE [Suspect]
     Dosage: ORAL
     Route: 048
     Dates: start: 20070701
  2. HYDROCORTISONE [Concomitant]
  3. CORTISONE ACETATE TAB [Concomitant]

REACTIONS (2)
  - ANAEMIA [None]
  - DEMENTIA [None]
